FAERS Safety Report 25445774 (Version 1)
Quarter: 2025Q2

REPORT INFORMATION
  Report Type: Report from Study
  Country: CA (occurrence: CA)
  Receive Date: 20250617
  Receipt Date: 20250617
  Transmission Date: 20250717
  Serious: Yes (Other)
  Sender: ABBVIE
  Company Number: CA-ABBVIE-6318577

PATIENT
  Sex: Male

DRUGS (1)
  1. HUMIRA [Suspect]
     Active Substance: ADALIMUMAB
     Indication: Crohn^s disease
     Route: 058

REACTIONS (6)
  - Peripheral artery occlusion [Unknown]
  - Drug ineffective [Unknown]
  - Emotional distress [Unknown]
  - Illness [Unknown]
  - Fistula [Unknown]
  - Quality of life decreased [Unknown]
